FAERS Safety Report 7712068-5 (Version None)
Quarter: 2011Q3

REPORT INFORMATION
  Report Type: 
  Country: None (occurrence: None)
  Receive Date: 20110822
  Receipt Date: 20110809
  Transmission Date: 20111222
  Serious: Yes (Death)
  Sender: FDA-Public Use
  Company Number: DSA_47414_2011

PATIENT
  Age: 50 Year
  Sex: Female

DRUGS (2)
  1. BUPROPION HYDROCHLORIDE [Suspect]
     Indication: PRODUCT USED FOR UNKNOWN INDICATION
     Dosage: (AMOUNT UNSPECIFIED ORAL)
     Route: 048
  2. METOPROLOL TARTRATE [Suspect]
     Indication: PRODUCT USED FOR UNKNOWN INDICATION
     Dosage: (80 TABLETS X 1 (DOSE UNKNOWN) - NOT THE PRESCRIBED AMOUNT ORAL)
     Route: 048

REACTIONS (6)
  - CARDIAC ARREST [None]
  - HEART RATE DECREASED [None]
  - MULTI-ORGAN FAILURE [None]
  - OVERDOSE [None]
  - HYPOTENSION [None]
  - BRADYCARDIA [None]
